FAERS Safety Report 9012915 (Version 1)
Quarter: 2013Q1

REPORT INFORMATION
  Report Type: Spontaneous
  Country: US (occurrence: US)
  Receive Date: 20130114
  Receipt Date: 20130114
  Transmission Date: 20140127
  Serious: Yes (Death, Hospitalization, Disabling)
  Sender: FDA-Public Use
  Company Number: US-GLAXOSMITHKLINE-A0784435A

PATIENT
  Age: 73 Year
  Sex: Male
  Weight: 65.9 kg

DRUGS (7)
  1. AVANDIA [Suspect]
     Indication: DIABETES MELLITUS
     Dosage: 8MG PER DAY
     Route: 048
     Dates: start: 20040910, end: 20060301
  2. PRANDIN [Concomitant]
  3. STARLIX [Concomitant]
  4. INSULIN [Concomitant]
  5. MICRONASE [Concomitant]
  6. ATENOLOL [Concomitant]
  7. RANITIDINE [Concomitant]

REACTIONS (4)
  - Arrhythmia [Fatal]
  - Acute myocardial infarction [Unknown]
  - Cerebrovascular accident [Unknown]
  - Transient ischaemic attack [Unknown]
